FAERS Safety Report 19231151 (Version 1)
Quarter: 2021Q2

REPORT INFORMATION
  Report Type: Spontaneous
  Country: US (occurrence: US)
  Receive Date: 20210507
  Receipt Date: 20210507
  Transmission Date: 20210717
  Serious: No
  Sender: FDA-Public Use
  Company Number: US-PERRIGO-21US002440

PATIENT
  Age: 86 Year
  Sex: Female
  Weight: 86.17 kg

DRUGS (6)
  1. PERMETHRIN. [Suspect]
     Active Substance: PERMETHRIN
     Dosage: APPROX. 45 G, SINGLE
     Route: 061
     Dates: start: 202012, end: 202012
  2. PERMETHRIN. [Suspect]
     Active Substance: PERMETHRIN
     Dosage: APPROX. 45 G, TWICE
     Route: 061
     Dates: start: 202101, end: 202101
  3. PERMETHRIN. [Suspect]
     Active Substance: PERMETHRIN
     Indication: ACARODERMATITIS
     Dosage: APPROX. 45 G, SINGLE
     Route: 061
     Dates: start: 20201119, end: 20201119
  4. PERMETHRIN. [Suspect]
     Active Substance: PERMETHRIN
     Dosage: APPROX. 45 G, SINGLE
     Route: 061
     Dates: start: 20201123, end: 20201123
  5. IVERMECTIN. [Concomitant]
     Active Substance: IVERMECTIN
     Indication: ACARODERMATITIS
     Dosage: 2 DOSES
     Route: 065
     Dates: start: 202012, end: 202012
  6. PERMETHRIN. [Suspect]
     Active Substance: PERMETHRIN
     Dosage: APPROX. 45 G, SINGLE
     Route: 061
     Dates: start: 20201130, end: 20201130

REACTIONS (3)
  - Paraesthesia [Recovered/Resolved]
  - Drug ineffective [Unknown]
  - Off label use [Recovered/Resolved]

NARRATIVE: CASE EVENT DATE: 202011
